FAERS Safety Report 6834167-2 (Version None)
Quarter: 2010Q3

REPORT INFORMATION
  Report Type: 
  Country: None (occurrence: None)
  Receive Date: 20100712
  Receipt Date: 20070423
  Transmission Date: 20110219
  Serious: No
  Sender: FDA-Public Use
  Company Number: US-PFIZER INC-2007034085

PATIENT
  Sex: Female
  Weight: 55.454 kg

DRUGS (3)
  1. CHANTIX [Suspect]
     Indication: SMOKING CESSATION THERAPY
     Dates: start: 20070418
  2. XANAX [Concomitant]
  3. SPIRIVA [Concomitant]

REACTIONS (10)
  - ABDOMINAL DISCOMFORT [None]
  - EYE DISORDER [None]
  - FATIGUE [None]
  - FEELING JITTERY [None]
  - FLATULENCE [None]
  - IRRITABILITY [None]
  - NAUSEA [None]
  - NERVOUSNESS [None]
  - SOMNOLENCE [None]
  - TREMOR [None]
